FAERS Safety Report 9797538 (Version 1)
Quarter: 2014Q1

REPORT INFORMATION
  Report Type: Spontaneous
  Country: FR (occurrence: FR)
  Receive Date: 20140106
  Receipt Date: 20140106
  Transmission Date: 20141002
  Serious: Yes (Hospitalization)
  Sender: FDA-Public Use
  Company Number: PHHY2013FR152664

PATIENT
  Age: 32 Year
  Sex: Female

DRUGS (2)
  1. GILENYA [Suspect]
     Indication: MULTIPLE SCLEROSIS
     Dosage: 0.5 MG, QD
     Route: 048
     Dates: start: 20120717
  2. LAROXYL [Suspect]
     Indication: TENSION HEADACHE
     Dosage: 25 MG, QD
     Route: 048
     Dates: start: 20121018

REACTIONS (1)
  - Epilepsy [Recovered/Resolved]
